FAERS Safety Report 14856077 (Version 1)
Quarter: 2018Q2

REPORT INFORMATION
  Report Type: Spontaneous
  Country: US (occurrence: US)
  Receive Date: 20180507
  Receipt Date: 20180507
  Transmission Date: 20180711
  Serious: No
  Sender: FDA-Public Use
  Company Number: US-ROCHE-1999074

PATIENT
  Age: 67 Year
  Sex: Male

DRUGS (6)
  1. FLUTICASONE CREAM [Concomitant]
     Route: 065
  2. ISONIAZID. [Concomitant]
     Active Substance: ISONIAZID
     Route: 065
  3. OMEPRAZOLE. [Concomitant]
     Active Substance: OMEPRAZOLE
     Route: 065
  4. LORATADINE. [Concomitant]
     Active Substance: LORATADINE
     Route: 065
  5. ESBRIET [Suspect]
     Active Substance: PIRFENIDONE
     Indication: IDIOPATHIC PULMONARY FIBROSIS
     Dosage: THREE 267 MG CAPSULES BY MOUTH THRICE A DAY WITH MEALS
     Route: 048
     Dates: start: 20170330
  6. SPIRIVA [Concomitant]
     Active Substance: TIOTROPIUM BROMIDE MONOHYDRATE
     Route: 065

REACTIONS (2)
  - Nausea [Recovered/Resolved]
  - Productive cough [Recovered/Resolved]

NARRATIVE: CASE EVENT DATE: 20170913
